FAERS Safety Report 6546574-6 (Version None)
Quarter: 2010Q1

REPORT INFORMATION
  Report Type: 
  Country: None (occurrence: None)
  Receive Date: 20100122
  Receipt Date: 20100114
  Transmission Date: 20100710
  Serious: Yes (Other)
  Sender: FDA-Public Use
  Company Number: US-PFIZER INC-2010005386

PATIENT
  Sex: Female

DRUGS (2)
  1. AMLODIPINE BESILATE [Suspect]
  2. HYDROCHLOROTHIAZIDE [Suspect]

REACTIONS (3)
  - DISORIENTATION [None]
  - PALPITATIONS [None]
  - PHARYNGEAL OEDEMA [None]
